FAERS Safety Report 4365947-3 (Version None)
Quarter: 2004Q2

REPORT INFORMATION
  Report Type: 
  Country: None (occurrence: None)
  Receive Date: 20040526
  Receipt Date: 20040526
  Transmission Date: 20050107
  Serious: Yes (Other)
  Sender: FDA-Public Use
  Company Number: None

PATIENT
  Age: 61 Year
  Sex: Male
  Weight: 77.1 kg

DRUGS (14)
  1. TERAZOSIN HCL [Suspect]
  2. SENNOSIDES [Concomitant]
  3. DARBEPOETIN ALFA [Concomitant]
  4. METOPROLOL TARTRATE [Concomitant]
  5. TERAZOSIN HCL [Concomitant]
  6. MEGESTROL ACETATE [Concomitant]
  7. MORPHINE [Concomitant]
  8. OMEPRAZOLE [Concomitant]
  9. CLOPIDOGREL BISULFATE [Concomitant]
  10. METOCLOPRAMIDE HCL [Concomitant]
  11. FENTANYL [Concomitant]
  12. DOCUSATE NA [Concomitant]
  13. NITROGLYCERIN [Concomitant]
  14. ZOLEDRONIC [Concomitant]

REACTIONS (1)
  - HYPOTENSION [None]
